FAERS Safety Report 9161307 (Version 2)
Quarter: 2013Q2

REPORT INFORMATION
  Report Type: Spontaneous
  Country: US (occurrence: US)
  Receive Date: 20130313
  Receipt Date: 20130514
  Transmission Date: 20140414
  Serious: No
  Sender: FDA-Public Use
  Company Number: US-009507513-1303USA006126

PATIENT
  Age: 2 Year
  Sex: Female
  Weight: 15.87 kg

DRUGS (4)
  1. CLARITIN ORAL SOLUTION [Suspect]
     Indication: RESPIRATORY TRACT CONGESTION
     Dosage: UNK, UNKNOWN
     Route: 048
     Dates: start: 20130307
  2. CLARITIN ORAL SOLUTION [Suspect]
     Indication: MEDICAL OBSERVATION
  3. AMOXICILLIN [Concomitant]
     Indication: PRODUCT USED FOR UNKNOWN INDICATION
     Dosage: UNK, UNKNOWN
  4. CLARITIN ORAL SOLUTION [Suspect]
     Indication: RHINORRHOEA
     Dosage: 5 MG, QD
     Route: 048
     Dates: start: 20130306

REACTIONS (2)
  - Accidental exposure to product by child [Unknown]
  - Overdose [Unknown]
